FAERS Safety Report 9099864 (Version 1)
Quarter: 2013Q1

REPORT INFORMATION
  Report Type: Report from Study
  Country: BE (occurrence: BE)
  Receive Date: 20130214
  Receipt Date: 20130214
  Transmission Date: 20140127
  Serious: Yes (Death)
  Sender: FDA-Public Use
  Company Number: BE-ROCHE-1190836

PATIENT
  Sex: 0

DRUGS (3)
  1. RITUXIMAB [Suspect]
     Indication: B-CELL LYMPHOMA
     Dosage: ON DAY1
     Route: 042
  2. YTTRIUM Y-90 [Suspect]
     Indication: B-CELL LYMPHOMA
     Dosage: 11.1 MBQ/KG
     Route: 065
  3. YTTRIUM Y-90 [Suspect]
     Dosage: 14.8 MBQ/KG
     Route: 065

REACTIONS (1)
  - Myelodysplastic syndrome [Fatal]
